FAERS Safety Report 7483088-3 (Version None)
Quarter: 2011Q2

REPORT INFORMATION
  Report Type: 
  Country: None (occurrence: None)
  Receive Date: 20110516
  Receipt Date: 20110509
  Transmission Date: 20111010
  Serious: Yes (Death)
  Sender: FDA-Public Use
  Company Number: DE-BAXTER-2011BH006354

PATIENT
  Age: 70 Year
  Sex: Female
  Weight: 52 kg

DRUGS (7)
  1. ZIENAM [Concomitant]
     Indication: COLITIS
     Route: 042
     Dates: end: 20110312
  2. METRONIDAZOLE [Concomitant]
     Indication: COLITIS
     Route: 042
     Dates: end: 20110312
  3. CYMEVEN [Concomitant]
     Indication: CYTOMEGALOVIRUS INFECTION
     Route: 042
     Dates: end: 20110312
  4. ANTIHYPERTENSIVES [Concomitant]
     Indication: PRODUCT USED FOR UNKNOWN INDICATION
     Route: 065
  5. PHYSIOSOL IN PLASTIC CONTAINER [Concomitant]
     Indication: PERITONEAL DIALYSIS
     Route: 033
     Dates: start: 20101228
  6. EXTRANEAL [Suspect]
     Indication: PERITONEAL DIALYSIS
     Route: 033
     Dates: start: 20110124, end: 20110301
  7. IMMUNOSUPPRESSIVE AGENTS [Concomitant]
     Indication: PRODUCT USED FOR UNKNOWN INDICATION
     Route: 065

REACTIONS (3)
  - FUNGAL PERITONITIS [None]
  - PULMONARY SEPSIS [None]
  - MULTI-ORGAN FAILURE [None]
